FAERS Safety Report 6405210-X (Version None)
Quarter: 2009Q4

REPORT INFORMATION
  Report Type: 
  Country: None (occurrence: None)
  Receive Date: 20091019
  Receipt Date: 20091009
  Transmission Date: 20100525
  Serious: Yes (Hospitalization)
  Sender: FDA-Public Use
  Company Number: PHHY2009MX44039

PATIENT
  Age: 66 Year
  Sex: Male

DRUGS (1)
  1. STALEVO 100 [Suspect]
     Indication: PARKINSON'S DISEASE
     Dosage: 200/50/12.5 MG (3.5 TAB) PER DAY
     Route: 048
     Dates: start: 20070301, end: 20090701

REACTIONS (1)
  - PNEUMONIA [None]
